FAERS Safety Report 25240131 (Version 3)
Quarter: 2025Q3

REPORT INFORMATION
  Report Type: Report from Study
  Country: US (occurrence: US)
  Receive Date: 20250425
  Receipt Date: 20250925
  Transmission Date: 20251021
  Serious: No
  Sender: ABBVIE
  Company Number: US-ABBVIE-6121944

PATIENT
  Age: 74 Year
  Sex: Female

DRUGS (3)
  1. RINVOQ [Suspect]
     Active Substance: UPADACITINIB
     Indication: Dermatitis atopic
     Dosage: 1 MILLIGRAM/KG/MIN
     Route: 048
     Dates: start: 20231031
  2. RINVOQ [Suspect]
     Active Substance: UPADACITINIB
     Indication: Dermatitis atopic
     Route: 048
  3. PAROXETINE [Concomitant]
     Active Substance: PAROXETINE
     Indication: Dermatitis atopic
     Dates: start: 20150101

REACTIONS (5)
  - Pruritus [Not Recovered/Not Resolved]
  - Psoriasis [Unknown]
  - Rash [Unknown]
  - Wrong technique in product usage process [Unknown]
  - Dental caries [Unknown]

NARRATIVE: CASE EVENT DATE: 20241231
